FAERS Safety Report 12837452 (Version 3)
Quarter: 2016Q4

REPORT INFORMATION
  Report Type: Report from Study
  Country: DE (occurrence: DE)
  Receive Date: 20161011
  Receipt Date: 20161210
  Transmission Date: 20170207
  Serious: Yes (Hospitalization)
  Sender: FDA-Public Use
  Company Number: DE-B.I. PHARMACEUTICALS,INC./RIDGEFIELD-2016-BI-065500

PATIENT
  Age: 62 Year
  Sex: Male
  Weight: 78 kg

DRUGS (4)
  1. SIMVASTATIN. [Concomitant]
     Active Substance: SIMVASTATIN
     Indication: ARTERIOSCLEROSIS
     Route: 048
     Dates: start: 20160926, end: 20160927
  2. BLINDED DABIGATRAN [Suspect]
     Active Substance: DABIGATRAN ETEXILATE
     Indication: CEREBROVASCULAR ACCIDENT
     Route: 065
     Dates: start: 20150812
  3. CLEXANE [Concomitant]
     Active Substance: ENOXAPARIN SODIUM
     Indication: CEREBROVASCULAR ACCIDENT PROPHYLAXIS
     Route: 058
     Dates: start: 20160926, end: 20160927
  4. RAMIPRIL. [Concomitant]
     Active Substance: RAMIPRIL
     Indication: HYPERTENSION
     Route: 048
     Dates: start: 20150815

REACTIONS (1)
  - Generalised tonic-clonic seizure [Recovered/Resolved]

NARRATIVE: CASE EVENT DATE: 20160926
